FAERS Safety Report 9898003 (Version 2)
Quarter: 2014Q1

REPORT INFORMATION
  Report Type: Spontaneous
  Country: JP (occurrence: JP)
  Receive Date: 20140214
  Receipt Date: 20140305
  Transmission Date: 20141002
  Serious: Yes (Other)
  Sender: FDA-Public Use
  Company Number: JP-B.I. PHARMACEUTICALS,INC./RIDGEFIELD-2014-BI-06034NB

PATIENT
  Age: 78 Year
  Sex: Female

DRUGS (2)
  1. PRAZAXA [Suspect]
     Indication: PROPHYLAXIS
     Dosage: 220 MG
     Route: 048
     Dates: start: 20130909, end: 20140210
  2. INSULIN/ INSULIN [Concomitant]
     Route: 065

REACTIONS (2)
  - Colon cancer [Unknown]
  - Melaena [Unknown]
